FAERS Safety Report 5757601-8 (Version None)
Quarter: 2008Q2

REPORT INFORMATION
  Report Type: 
  Country: None (occurrence: None)
  Receive Date: 20080603
  Receipt Date: 20080522
  Transmission Date: 20081010
  Serious: Yes (Other)
  Sender: FDA-Public Use
  Company Number: GB-PFIZER INC-2008024507

PATIENT
  Sex: Female

DRUGS (7)
  1. LYRICA [Suspect]
     Indication: FIBROMYALGIA
     Dosage: DAILY DOSE:300MG-FREQ:DAILY
     Route: 048
  2. SEREVENT [Concomitant]
     Route: 055
  3. LORATADINE [Concomitant]
  4. ALL OTHER THERAPEUTIC PRODUCTS [Concomitant]
  5. GLUCOSAMINE W/CHONDROITIN SULFATES [Concomitant]
  6. ALBUTEROL [Concomitant]
     Route: 055
  7. SERETIDE [Concomitant]
     Route: 055

REACTIONS (4)
  - EYE INFECTION [None]
  - FATIGUE [None]
  - NAIL GROWTH ABNORMAL [None]
  - WEIGHT INCREASED [None]
